FAERS Safety Report 6045562-6 (Version None)
Quarter: 2009Q1

REPORT INFORMATION
  Report Type: 
  Country: None (occurrence: None)
  Receive Date: 20090121
  Receipt Date: 20090113
  Transmission Date: 20090719
  Serious: Yes (Hospitalization)
  Sender: FDA-Public Use
  Company Number: US-WATSON-2009-00152

PATIENT
  Age: 52 Year
  Sex: Male

DRUGS (7)
  1. CARVEDILOL (WATSON LABORATORIES) [Suspect]
     Indication: DRUG USE FOR UNKNOWN INDICATION
     Dosage: 6.23 MG, BID
  2. DEXAMETHASONE TAB [Suspect]
     Indication: DRUG USE FOR UNKNOWN INDICATION
     Dosage: ELIXIR, 5MG, BID
     Route: 048
  3. FUROSEMIDE (WATSON LABORATORIES) [Suspect]
     Indication: DRUG USE FOR UNKNOWN INDICATION
     Dosage: 80 MG, DAILY
     Route: 048
  4. IBUPROFEN TABLETS [Suspect]
     Indication: CLUSTER HEADACHE
     Dosage: PRN
     Route: 048
  5. LIDOCAINE 1% W/ EPINEPHRINE 1:200,000 [Suspect]
     Indication: ORAL PAIN
     Dosage: 2% GEL FORORAL PAIN
     Route: 048
  6. LISINOPRIL [Suspect]
     Indication: DRUG USE FOR UNKNOWN INDICATION
     Dosage: 20 MG, DAILY
     Route: 048
  7. SPIRONOLACTONE/HYDROCHLOROTHIAZIDE 25/25 (WATSON LABORATORIES) [Suspect]
     Indication: DRUG USE FOR UNKNOWN INDICATION
     Dosage: 25 MG, 3/WEEK

REACTIONS (1)
  - TOXIC EPIDERMAL NECROLYSIS [None]
